FAERS Safety Report 17854546 (Version 1)
Quarter: 2020Q2

REPORT INFORMATION
  Report Type: Spontaneous
  Country: US (occurrence: US)
  Receive Date: 20200602
  Receipt Date: 20200602
  Transmission Date: 20200714
  Serious: Yes (Hospitalization)
  Sender: FDA-Public Use
  Company Number: None

PATIENT
  Age: 39 Year
  Sex: Male
  Weight: 87.09 kg

DRUGS (2)
  1. REMDESIVIR. [Concomitant]
     Active Substance: REMDESIVIR
     Dates: start: 20200527, end: 20200531
  2. REMDESIVIR. [Suspect]
     Active Substance: REMDESIVIR
     Indication: COVID-19
     Route: 042

REACTIONS (2)
  - Alanine aminotransferase increased [None]
  - Aspartate aminotransferase increased [None]

NARRATIVE: CASE EVENT DATE: 20200530
